FAERS Safety Report 10244279 (Version 3)
Quarter: 2014Q3

REPORT INFORMATION
  Report Type: Spontaneous
  Country: FR (occurrence: FR)
  Receive Date: 20140618
  Receipt Date: 20140917
  Transmission Date: 20150326
  Serious: Yes (Other)
  Sender: FDA-Public Use
  Company Number: FR-ASTELLAS-2014EU002803

PATIENT
  Age: 3 Year
  Sex: Male
  Weight: 12 kg

DRUGS (5)
  1. NERISONE [Concomitant]
     Active Substance: DIFLUCORTOLONE VALERATE
     Indication: ECZEMA
     Dosage: 1 DAILY, UNKNOWN FREQ.
     Route: 065
     Dates: start: 201310, end: 20131203
  2. DERMOVAL                           /00008501/ [Concomitant]
     Indication: ECZEMA
     Dosage: 1 DAILY, UNKNOWN FREQ.
     Route: 065
     Dates: start: 20140122, end: 20140303
  3. ZINC [Concomitant]
     Active Substance: ZINC\ZINC CHLORIDE
     Indication: ECZEMA
     Dosage: 3 MG DAILY, UNKNOWN FREQ.
     Route: 065
     Dates: start: 201309, end: 201401
  4. PROTOPIC [Suspect]
     Active Substance: TACROLIMUS
     Indication: ECZEMA
     Dosage: UNK, OTHER
     Route: 061
     Dates: start: 20131122
  5. DIPROSONE                          /00008502/ [Concomitant]
     Indication: ECZEMA
     Dosage: 1 DAILY LOCALLY , UNKNOWN FREQ.
     Route: 065
     Dates: start: 20140821

REACTIONS (3)
  - Lymphadenopathy [Not Recovered/Not Resolved]
  - Drug ineffective [Unknown]
  - Fatigue [Not Recovered/Not Resolved]

NARRATIVE: CASE EVENT DATE: 20140301
